FAERS Safety Report 9586346 (Version 5)
Quarter: 2016Q3

REPORT INFORMATION
  Report Type: Report from Study
  Country: SG (occurrence: SG)
  Receive Date: 20131003
  Receipt Date: 20160815
  Transmission Date: 20161109
  Serious: Yes (Other)
  Sender: FDA-Public Use
  Company Number: PHHY2013SG109910

PATIENT
  Age: 57 Year
  Sex: Male

DRUGS (1)
  1. GLIVEC [Suspect]
     Active Substance: IMATINIB MESYLATE
     Indication: GASTROINTESTINAL STROMAL TUMOUR
     Dosage: 400 MG, QD
     Route: 065
     Dates: start: 2004, end: 201603

REACTIONS (13)
  - Diverticulitis [Unknown]
  - Prostatomegaly [Unknown]
  - Internal haemorrhage [Unknown]
  - Nodule [Unknown]
  - Nephrolithiasis [Unknown]
  - Calcinosis [Unknown]
  - Blood urine present [Not Recovered/Not Resolved]
  - Renal impairment [Unknown]
  - Calculus bladder [Not Recovered/Not Resolved]
  - Tumour necrosis [Unknown]
  - Mass [Unknown]
  - Hepatic steatosis [Unknown]
  - Cyst [Unknown]

NARRATIVE: CASE EVENT DATE: 201304
